FAERS Safety Report 7731388-1 (Version None)
Quarter: 2011Q3

REPORT INFORMATION
  Report Type: 
  Country: None (occurrence: None)
  Receive Date: 20110906
  Receipt Date: 20110830
  Transmission Date: 20111222
  Serious: Yes (Death, Life-Threatening)
  Sender: FDA-Public Use
  Company Number: JP-PFIZER INC-2011172412

PATIENT
  Age: 74 Year
  Sex: Male
  Weight: 59.7 kg

DRUGS (4)
  1. ZYVOX [Suspect]
     Indication: SEPSIS
     Dosage: 600 MG, 2X/DAY
     Route: 041
     Dates: start: 20110717, end: 20110731
  2. VANCOMYCIN [Concomitant]
     Indication: SEPSIS
     Dosage: 0.5 G, 1X/DAY
     Route: 041
     Dates: start: 20110709, end: 20110715
  3. ROCEPHIN [Concomitant]
     Indication: SEPSIS
     Dosage: 1 G, 2X/DAY
     Route: 041
     Dates: start: 20110709, end: 20110710
  4. CEFOPERAZONE SODIUM [Concomitant]
     Indication: PNEUMONIA
     Dosage: 1 G, 2X/DAY
     Route: 041
     Dates: start: 20110720, end: 20110807

REACTIONS (3)
  - PLATELET COUNT DECREASED [None]
  - WHITE BLOOD CELL COUNT DECREASED [None]
  - UPPER GASTROINTESTINAL HAEMORRHAGE [None]
